FAERS Safety Report 5751007-3 (Version None)
Quarter: 2008Q2

REPORT INFORMATION
  Report Type: 
  Country: None (occurrence: None)
  Receive Date: 20080528
  Receipt Date: 20080516
  Transmission Date: 20081010
  Serious: Yes (Hospitalization, Other)
  Sender: FDA-Public Use
  Company Number: HQWYE322314MAR06

PATIENT
  Sex: Female
  Weight: 89.35 kg

DRUGS (3)
  1. PREMPRO [Suspect]
  2. CLIMARA [Suspect]
  3. LOESTRIN 1.5/30 [Suspect]

REACTIONS (1)
  - BREAST CANCER METASTATIC [None]
